FAERS Safety Report 7376322-1 (Version None)
Quarter: 2011Q1

REPORT INFORMATION
  Report Type: 
  Country: None (occurrence: None)
  Receive Date: 20110325
  Receipt Date: 20110316
  Transmission Date: 20110831
  Serious: Yes (Hospitalization, Other)
  Sender: FDA-Public Use
  Company Number: AU-PFIZER INC-2011046234

PATIENT
  Age: 32 Year
  Sex: Female
  Weight: 100 kg

DRUGS (7)
  1. DOXYCYCLINE HYCLATE [Suspect]
     Indication: ACNE
     Dosage: 100 MG, 1X/DAY
     Route: 048
     Dates: start: 20090801
  2. VENTOLIN [Concomitant]
     Indication: ASTHMA
     Dosage: 6 PUFFS WHEN REQUIRED
  3. CLEXANE [Suspect]
     Indication: PULMONARY EMBOLISM
     Dosage: 100 MG, 2X/DAY
     Route: 058
     Dates: start: 20110301, end: 20110304
  4. SOMAC [Suspect]
     Indication: REFLUX OESOPHAGITIS
     Dosage: 40 MG, 1X/DAY
     Route: 048
     Dates: start: 20100401
  5. PRISTIQ [Suspect]
     Indication: DEPRESSION
     Dosage: 50 MG, 1X/DAY
     Route: 048
     Dates: start: 20100101
  6. OXYCONTIN [Suspect]
     Indication: PAIN
     Dosage: 10 MG, 2X/DAY
     Route: 048
     Dates: start: 20110301
  7. WARFARIN [Suspect]
     Indication: PULMONARY EMBOLISM
     Dosage: 7-8 MG DAILY
     Route: 048
     Dates: start: 20090601

REACTIONS (7)
  - BLOOD ALKALINE PHOSPHATASE INCREASED [None]
  - TIBIA FRACTURE [None]
  - ASPARTATE AMINOTRANSFERASE INCREASED [None]
  - GAMMA-GLUTAMYLTRANSFERASE INCREASED [None]
  - HEPATIC STEATOSIS [None]
  - LIVER FUNCTION TEST ABNORMAL [None]
  - ALANINE AMINOTRANSFERASE INCREASED [None]
